FAERS Safety Report 9302900 (Version 1)
Quarter: 2013Q2

REPORT INFORMATION
  Report Type: Spontaneous
  Country: US (occurrence: US)
  Receive Date: 20130522
  Receipt Date: 20130522
  Transmission Date: 20140414
  Serious: Yes (Other)
  Sender: FDA-Public Use
  Company Number: US-BAYER-2013-063430

PATIENT
  Age: 23 Year
  Sex: Female
  Weight: 82.99 kg

DRUGS (8)
  1. YAZ [Suspect]
  2. BUDEPRION [Concomitant]
  3. TRAZODONE [Concomitant]
  4. LACTULOSE [Concomitant]
  5. DORYX [Concomitant]
  6. ADVAIR [Concomitant]
  7. LORAZEPAM [Concomitant]
  8. SERTRALINE [Concomitant]

REACTIONS (1)
  - Deep vein thrombosis [None]
